FAERS Safety Report 9562207 (Version 3)
Quarter: 2021Q4

REPORT INFORMATION
  Report Type: Report from Study
  Country: AR (occurrence: AR)
  Receive Date: 20130927
  Receipt Date: 20211030
  Transmission Date: 20220303
  Serious: Yes (Other)
  Sender: FDA-Public Use
  Company Number: PHHY2013AR107998

PATIENT
  Age: 73 Year
  Sex: Male

DRUGS (4)
  1. EXFORGE [Suspect]
     Active Substance: AMLODIPINE BESYLATE\VALSARTAN
     Indication: Hypertension
     Dosage: 1 DF (80/5 MG), DAILY
     Route: 048
  2. EXFORGE [Suspect]
     Active Substance: AMLODIPINE BESYLATE\VALSARTAN
     Dosage: UNK UNK, QD
     Route: 065
  3. EXFORGE [Suspect]
     Active Substance: AMLODIPINE BESYLATE\VALSARTAN
     Dosage: 3 DF, QD
     Route: 065
  4. ASPIRIN [Concomitant]
     Active Substance: ASPIRIN
     Indication: Product used for unknown indication
     Dosage: UNK
     Route: 065

REACTIONS (12)
  - Cerebrovascular accident [Unknown]
  - Angina pectoris [Unknown]
  - Hypertension [Unknown]
  - Pain [Unknown]
  - COVID-19 [Recovered/Resolved with Sequelae]
  - Dyspnoea [Unknown]
  - Feeling abnormal [Unknown]
  - Dizziness [Unknown]
  - Vertigo [Unknown]
  - Memory impairment [Unknown]
  - Gait disturbance [Unknown]
  - Extra dose administered [Unknown]

NARRATIVE: CASE EVENT DATE: 20210422
